FAERS Safety Report 20649643 (Version 1)
Quarter: 2022Q1

REPORT INFORMATION
  Report Type: Spontaneous
  Country: US (occurrence: US)
  Receive Date: 20220329
  Receipt Date: 20220329
  Transmission Date: 20220424
  Serious: No
  Sender: FDA-Public Use
  Company Number: US-HISAMITSU-2021-US-027148

PATIENT
  Sex: Female

DRUGS (1)
  1. SALONPAS PAIN RELIEF [Suspect]
     Active Substance: MENTHOL\METHYL SALICYLATE
     Indication: Analgesic therapy
     Dosage: 9 PATCHES OVER THE COURSE OF 4-5 DAYS
     Route: 061
     Dates: start: 20211214, end: 20211218

REACTIONS (1)
  - Intentional product misuse [Unknown]
